FAERS Safety Report 4951680-3 (Version None)
Quarter: 2006Q1

REPORT INFORMATION
  Report Type: 
  Country: None (occurrence: None)
  Receive Date: 20060322
  Receipt Date: 20060322
  Transmission Date: 20060701
  Serious: Yes (Other)
  Sender: FDA-Public Use
  Company Number: None

PATIENT
  Sex: Female
  Weight: 92.9874 kg

DRUGS (10)
  1. HUMIRA [Suspect]
     Dosage: 40MG   QOW  SQ
     Route: 058
     Dates: start: 20040501, end: 20060321
  2. METHOTREXATE [Concomitant]
  3. RANITIDINE [Concomitant]
  4. AVARA [Concomitant]
  5. PREVACID [Concomitant]
  6. DIOVAN [Concomitant]
  7. VERELAN [Concomitant]
  8. ZOCOR [Concomitant]
  9. FOLIC ACID [Concomitant]
  10. SINGULAIR [Concomitant]

REACTIONS (1)
  - ELECTROCARDIOGRAM ABNORMAL [None]
